FAERS Safety Report 23869457 (Version 5)
Quarter: 2024Q3

REPORT INFORMATION
  Report Type: Spontaneous
  Country: US (occurrence: US)
  Receive Date: 20240517
  Receipt Date: 20240927
  Transmission Date: 20241017
  Serious: No
  Sender: BRISTOL MYERS SQUIBB
  Company Number: US-BRISTOL-MYERS SQUIBB COMPANY-2024-076613

PATIENT
  Age: 71 Year
  Sex: Female

DRUGS (3)
  1. REVLIMID [Suspect]
     Active Substance: LENALIDOMIDE
     Indication: Plasma cell myeloma
     Dosage: DOSE-25
     Route: 048
  2. REVLIMID [Suspect]
     Active Substance: LENALIDOMIDE
     Dosage: FREQUENCY: CYCLIC
     Route: 048
  3. REVLIMID [Suspect]
     Active Substance: LENALIDOMIDE
     Dosage: STRENGTH : 20 MG, FREQUENCY: QD FOR 14 DAYS
     Route: 048

REACTIONS (7)
  - Fatigue [Unknown]
  - Off label use [Unknown]
  - Skin ulcer [Unknown]
  - Inappropriate schedule of product administration [Unknown]
  - Cough [Unknown]
  - Sinusitis [Unknown]
  - Insomnia [Unknown]
